FAERS Safety Report 15028461 (Version 1)
Quarter: 2018Q2

REPORT INFORMATION
  Report Type: Spontaneous
  Country: FR (occurrence: FR)
  Receive Date: 20180619
  Receipt Date: 20180619
  Transmission Date: 20180711
  Serious: Yes (Other)
  Sender: FDA-Public Use
  Company Number: FR-GLAXOSMITHKLINE-FR2018105659

PATIENT
  Age: 73 Year
  Sex: Male
  Weight: 80 kg

DRUGS (1)
  1. AVODART [Suspect]
     Active Substance: DUTASTERIDE
     Indication: BENIGN PROSTATIC HYPERPLASIA
     Dosage: 1 DF, QD
     Route: 048
     Dates: start: 20170802, end: 20180510

REACTIONS (4)
  - Motor dysfunction [Recovering/Resolving]
  - Musculoskeletal stiffness [Recovering/Resolving]
  - Gait disturbance [Recovering/Resolving]
  - Aphasia [Recovered/Resolved]

NARRATIVE: CASE EVENT DATE: 201708
